FAERS Safety Report 15054462 (Version 1)
Quarter: 2018Q2

REPORT INFORMATION
  Report Type: Spontaneous
  Country: US (occurrence: US)
  Receive Date: 20180603
  Receipt Date: 20180603
  Transmission Date: 20180711
  Serious: No
  Sender: FDA-Public Use
  Company Number: None

PATIENT
  Age: 14 Month
  Sex: Female
  Weight: 8.1 kg

DRUGS (4)
  1. VITAMIN D [Concomitant]
     Active Substance: CHOLECALCIFEROL
  2. IRON COMBINATION DROPS [Concomitant]
  3. NYSTATIN CREAM USP (100,000 USP) [Suspect]
     Active Substance: NYSTATIN
     Indication: FUNGAL INFECTION
     Dosage: ?          QUANTITY:15 CREAM;?
     Route: 061
  4. FLUORIDE [Concomitant]
     Active Substance: SODIUM FLUORIDE

REACTIONS (2)
  - Dermatitis allergic [None]
  - Product substitution issue [None]

NARRATIVE: CASE EVENT DATE: 20180603
